FAERS Safety Report 24942375 (Version 1)
Quarter: 2025Q1

REPORT INFORMATION
  Report Type: Spontaneous
  Country: GB (occurrence: GB)
  Receive Date: 20250207
  Receipt Date: 20250207
  Transmission Date: 20250409
  Serious: Yes (Other)
  Sender: PFIZER
  Company Number: None

PATIENT
  Age: 57 Year
  Sex: Male
  Weight: 90 kg

DRUGS (8)
  1. SPIRONOLACTONE [Suspect]
     Active Substance: SPIRONOLACTONE
     Indication: Hypertension
     Dates: start: 20211129, end: 20241101
  2. ATENOLOL [Concomitant]
     Active Substance: ATENOLOL
  3. CANDESARTAN [Concomitant]
     Active Substance: CANDESARTAN
  4. DOXAZOSIN [Concomitant]
     Active Substance: DOXAZOSIN MESYLATE
  5. EDOXABAN [Concomitant]
     Active Substance: EDOXABAN
  6. EZETIMIBE [Concomitant]
     Active Substance: EZETIMIBE
  7. INCLISIRAN [Concomitant]
     Active Substance: INCLISIRAN
  8. LANSOPRAZOLE [Concomitant]
     Active Substance: LANSOPRAZOLE

REACTIONS (1)
  - Raynaud^s phenomenon [Recovered/Resolved]
